FAERS Safety Report 4488271-7 (Version None)
Quarter: 2004Q4

REPORT INFORMATION
  Report Type: 
  Country: None (occurrence: None)
  Receive Date: 20041026
  Receipt Date: 20041014
  Transmission Date: 20050328
  Serious: Yes (Other)
  Sender: FDA-Public Use
  Company Number: S04-USA-06889-01

PATIENT
  Age: 32 Year
  Sex: Female

DRUGS (2)
  1. CELEXA [Suspect]
     Indication: ANXIETY
     Dosage: 40 MG QD PO
     Route: 048
     Dates: start: 20010801, end: 20040201
  2. CELEXA [Suspect]
     Indication: DEPRESSION
     Dosage: 40 MG QD PO
     Route: 048
     Dates: start: 20010801, end: 20040201

REACTIONS (3)
  - CYSTOCELE [None]
  - DRUG EXPOSURE DURING PREGNANCY [None]
  - PLACENTA PRAEVIA [None]
